FAERS Safety Report 16681452 (Version 2)
Quarter: 2019Q3

REPORT INFORMATION
  Report Type: Report from Study
  Country: US (occurrence: US)
  Receive Date: 20190808
  Receipt Date: 20190910
  Transmission Date: 20191004
  Serious: No
  Sender: FDA-Public Use
  Company Number: PHEH2019US032382

PATIENT
  Sex: Female

DRUGS (1)
  1. PIQRAY [Suspect]
     Active Substance: ALPELISIB
     Indication: BREAST CANCER METASTATIC
     Route: 048

REACTIONS (7)
  - Dizziness [Unknown]
  - Diarrhoea [Unknown]
  - Vomiting [Unknown]
  - Decreased appetite [Unknown]
  - Asthenia [Unknown]
  - Fatigue [Unknown]
  - Weight decreased [Unknown]
